FAERS Safety Report 13355630 (Version 1)
Quarter: 2017Q1

REPORT INFORMATION
  Report Type: Report from Study
  Country: US (occurrence: US)
  Receive Date: 20170321
  Receipt Date: 20170321
  Transmission Date: 20170429
  Serious: Yes (Other)
  Sender: FDA-Public Use
  Company Number: US-REGENERON PHARMACEUTICALS, INC.-2017-13286

PATIENT

DRUGS (2)
  1. EYLEA [Suspect]
     Active Substance: AFLIBERCEPT
     Dosage: LEFT EYE, LAST DOSE (PER PROGRAM RECORDS)
     Route: 031
     Dates: start: 20170119, end: 20170119
  2. EYLEA [Suspect]
     Active Substance: AFLIBERCEPT
     Indication: AGE-RELATED MACULAR DEGENERATION
     Dosage: LEFT EYE (PER PROGRAM RECORDS)
     Route: 031
     Dates: start: 20160711, end: 20160711

REACTIONS (2)
  - Seizure [Unknown]
  - Eye irritation [Unknown]
